FAERS Safety Report 18498861 (Version 2)
Quarter: 2021Q1

REPORT INFORMATION
  Report Type: Spontaneous
  Country: US (occurrence: US)
  Receive Date: 20201112
  Receipt Date: 20210104
  Transmission Date: 20210419
  Serious: Yes (Hospitalization)
  Sender: FDA-Public Use
  Company Number: US-TEVA-2020-US-1846400

PATIENT
  Age: 83 Year
  Sex: Male

DRUGS (1)
  1. METHOTREXATE. [Suspect]
     Active Substance: METHOTREXATE
     Indication: RHEUMATOID ARTHRITIS
     Route: 065

REACTIONS (5)
  - Pneumothorax [Unknown]
  - Actinomycosis [Unknown]
  - Pneumomediastinum [Unknown]
  - Diffuse large B-cell lymphoma [Unknown]
  - Lymphoma [Unknown]
